FAERS Safety Report 16830022 (Version 1)
Quarter: 2019Q3

REPORT INFORMATION
  Report Type: Spontaneous
  Country: CN (occurrence: CN)
  Receive Date: 20190919
  Receipt Date: 20190919
  Transmission Date: 20191005
  Serious: Yes (Hospitalization, Other)
  Sender: FDA-Public Use
  Company Number: CN-INCYTE CORPORATION-2019IN009357

PATIENT

DRUGS (1)
  1. JAKAVI [Suspect]
     Active Substance: RUXOLITINIB
     Indication: PRIMARY MYELOFIBROSIS
     Dosage: UNK
     Route: 065
     Dates: start: 20180807, end: 20190807

REACTIONS (8)
  - Pyrexia [Unknown]
  - Platelet count decreased [Unknown]
  - Lung infection [Unknown]
  - Haemoglobin decreased [Unknown]
  - Neutrophil percentage increased [Unknown]
  - White blood cell count increased [Unknown]
  - Pneumonia [Unknown]
  - Neutrophil count increased [Unknown]
